FAERS Safety Report 4501972-7 (Version None)
Quarter: 2004Q4

REPORT INFORMATION
  Report Type: 
  Country: None (occurrence: None)
  Receive Date: 20041109
  Receipt Date: 20041006
  Transmission Date: 20050328
  Serious: Yes (Hospitalization, Other)
  Sender: FDA-Public Use
  Company Number: GB-JNJFOC-20041001991

PATIENT
  Age: 33 Year
  Sex: Female

DRUGS (3)
  1. IBUPROFEN [Suspect]
  2. ACETAMINOPHEN [Suspect]
  3. AMITRYPTILINE (AMITRYPTILINE) [Suspect]

REACTIONS (17)
  - BACTERIA SPUTUM IDENTIFIED [None]
  - BLOOD CULTURE POSITIVE [None]
  - COMA [None]
  - CONVULSION [None]
  - ELECTROMECHANICAL DISSOCIATION [None]
  - GRAND MAL CONVULSION [None]
  - HAEMOPHILUS INFECTION [None]
  - LOSS OF CONSCIOUSNESS [None]
  - LUNG CONSOLIDATION [None]
  - LUNG INFILTRATION [None]
  - OVERDOSE [None]
  - PNEUMOTHORAX [None]
  - POST PROCEDURAL COMPLICATION [None]
  - PYREXIA [None]
  - STREPTOCOCCAL INFECTION [None]
  - TACHYCARDIA [None]
  - TACHYPNOEA [None]
